FAERS Safety Report 14412520 (Version 1)
Quarter: 2018Q1

REPORT INFORMATION
  Report Type: Spontaneous
  Country: US (occurrence: US)
  Receive Date: 20180118
  Receipt Date: 20180118
  Transmission Date: 20180509
  Serious: Yes (Disabling)
  Sender: FDA-Public Use
  Company Number: None

PATIENT
  Age: 43 Year
  Sex: Female
  Weight: 115.65 kg

DRUGS (5)
  1. ALEVE [Concomitant]
     Active Substance: NAPROXEN SODIUM
  2. CHANTIX [Suspect]
     Active Substance: VARENICLINE TARTRATE
     Indication: SMOKING CESSATION THERAPY
     Dosage: 1 TABLET(S) .5MG/AM THEN 2XDAY; ORAL?
     Route: 048
     Dates: start: 20180111, end: 20180116
  3. LOSARTAN/HCTZ [Concomitant]
     Active Substance: HYDROCHLOROTHIAZIDE\LOSARTAN
  4. ALPRAZOLAM. [Concomitant]
     Active Substance: ALPRAZOLAM
  5. PRAVASTATIN. [Concomitant]
     Active Substance: PRAVASTATIN

REACTIONS (12)
  - Decreased appetite [None]
  - Feeling abnormal [None]
  - Nausea [None]
  - Feeling cold [None]
  - Hypersomnia [None]
  - Mood swings [None]
  - Crying [None]
  - Anxiety [None]
  - Headache [None]
  - Tremor [None]
  - Asthenia [None]
  - Musculoskeletal disorder [None]

NARRATIVE: CASE EVENT DATE: 20180118
